FAERS Safety Report 6244369-4 (Version None)
Quarter: 2009Q2

REPORT INFORMATION
  Report Type: 
  Country: None (occurrence: None)
  Receive Date: 20090625
  Receipt Date: 20090612
  Transmission Date: 20091009
  Serious: Yes (Other)
  Sender: FDA-Public Use
  Company Number: PHHY2009AR23202

PATIENT
  Sex: Female

DRUGS (2)
  1. EXJADE [Suspect]
     Dosage: 1 G, UNK
     Dates: start: 20090427, end: 20090611
  2. EXJADE [Suspect]
     Dosage: UNK
     Dates: start: 20090612

REACTIONS (2)
  - SLEEP DISORDER [None]
  - SOMNAMBULISM [None]
